FAERS Safety Report 4699130-9 (Version None)
Quarter: 2005Q2

REPORT INFORMATION
  Report Type: 
  Country: None (occurrence: None)
  Receive Date: 20050624
  Receipt Date: 20050615
  Transmission Date: 20051028
  Serious: Yes (Death, Hospitalization)
  Sender: FDA-Public Use
  Company Number: 200515582GDDC

PATIENT
  Age: 50 Year
  Sex: Female

DRUGS (7)
  1. TAXOTERE [Suspect]
     Indication: BREAST CANCER
     Route: 042
     Dates: start: 20050605, end: 20050605
  2. ADRIAMYCIN PFS [Suspect]
     Indication: BREAST CANCER
     Route: 042
     Dates: start: 20050605, end: 20050605
  3. CYCLOPHOSPHAMIDE [Suspect]
     Indication: BREAST CANCER
     Route: 042
     Dates: start: 20050605, end: 20050605
  4. G-CSF [Concomitant]
     Indication: PROPHYLAXIS
     Dosage: DOSE: UNK
  5. DEXAMETHASONE [Concomitant]
     Indication: PROPHYLAXIS
     Route: 042
     Dates: start: 20050604, end: 20050606
  6. NAVOBAN [Concomitant]
     Route: 042
     Dates: start: 20050605, end: 20050605
  7. LEUCON [Concomitant]
     Route: 048
     Dates: start: 20050606, end: 20050606

REACTIONS (18)
  - ASTHENIA [None]
  - BRAIN DAMAGE [None]
  - CARDIAC ARREST [None]
  - COMA [None]
  - DIARRHOEA [None]
  - FALL [None]
  - HEART RATE INCREASED [None]
  - HYPOTENSION [None]
  - HYPOTHERMIA [None]
  - LEUKOPENIA [None]
  - MUCOSAL INFLAMMATION [None]
  - MYDRIASIS [None]
  - NAUSEA [None]
  - NEUTROPENIA [None]
  - OEDEMA [None]
  - RESPIRATORY RATE INCREASED [None]
  - SHOCK [None]
  - VOMITING [None]
